FAERS Safety Report 7152014-9 (Version None)
Quarter: 2010Q4

REPORT INFORMATION
  Report Type: 
  Country: None (occurrence: None)
  Receive Date: 20101123
  Receipt Date: 20101118
  Transmission Date: 20110411
  Serious: Yes (Hospitalization)
  Sender: FDA-Public Use
  Company Number: 2010SP060824

PATIENT
  Age: 60 Year
  Sex: Female

DRUGS (1)
  1. VIRAFERONPEG (PEGINTERFERON ALFA-2B /01543001/) [Suspect]
     Indication: HEPATITIS C

REACTIONS (1)
  - TUBERCULOSIS [None]
